FAERS Safety Report 18006590 (Version 2)
Quarter: 2020Q3

REPORT INFORMATION
  Report Type: Spontaneous
  Country: MX (occurrence: MX)
  Receive Date: 20200710
  Receipt Date: 20200714
  Transmission Date: 20201103
  Serious: Yes (Other)
  Sender: FDA-Public Use
  Company Number: MX-PFIZER INC-2020263128

PATIENT
  Age: 50 Year
  Sex: Male

DRUGS (1)
  1. ATIVAN [Suspect]
     Active Substance: LORAZEPAM
     Indication: AUTONOMIC NEUROPATHY
     Dosage: 1 MG, 2X/DAY(1 IN THE MORNING AND 1 IN THE AFTERNOON)
     Dates: start: 2018

REACTIONS (6)
  - Thrombosis [Unknown]
  - Product use in unapproved indication [Unknown]
  - Intraocular pressure increased [Unknown]
  - Off label use [Unknown]
  - Face injury [Unknown]
  - Drug effective for unapproved indication [Unknown]
